FAERS Safety Report 16360306 (Version 1)
Quarter: 2019Q2

REPORT INFORMATION
  Report Type: Spontaneous
  Country: US (occurrence: US)
  Receive Date: 20190528
  Receipt Date: 20190528
  Transmission Date: 20190711
  Serious: No
  Sender: FDA-Public Use
  Company Number: US-009507513-1905USA011851

PATIENT
  Age: 70 Year
  Sex: Male

DRUGS (5)
  1. ENOXAPARIN SODIUM. [Concomitant]
     Active Substance: ENOXAPARIN SODIUM
     Dosage: 1 MILLIGRAM/KILOGRAM TWO TIMES PER DAY
  2. PRINIVIL [Suspect]
     Active Substance: LISINOPRIL
     Indication: PULMONARY EMBOLISM
     Dosage: UNK
     Route: 048
  3. PRINIVIL [Suspect]
     Active Substance: LISINOPRIL
     Indication: CARDIAC VENTRICULAR THROMBOSIS
  4. ASPIRIN. [Concomitant]
     Active Substance: ASPIRIN
     Dosage: UNK
  5. CARVEDILOL. [Concomitant]
     Active Substance: CARVEDILOL
     Dosage: UNK

REACTIONS (1)
  - Off label use [Unknown]
